FAERS Safety Report 9919437 (Version 1)
Quarter: 2014Q1

REPORT INFORMATION
  Report Type: Spontaneous
  Country: US (occurrence: US)
  Receive Date: 20140224
  Receipt Date: 20140224
  Transmission Date: 20141002
  Serious: Yes (Other)
  Sender: FDA-Public Use
  Company Number: US-UCBSA-113335

PATIENT
  Age: 47 Year
  Sex: Female

DRUGS (10)
  1. CIMZIA [Suspect]
     Indication: RHEUMATOID ARTHRITIS
     Dates: start: 2012
  2. HUMIRA [Suspect]
     Indication: RHEUMATOID ARTHRITIS
     Dates: start: 201003, end: 2012
  3. FOLIC ACID [Concomitant]
  4. VITAMIN D3 [Concomitant]
  5. METHOTREXATE [Concomitant]
     Dosage: DOSE STRENGTH: 2.5MG
  6. VALACYCLOVIR [Concomitant]
     Dosage: 500MG AS REQUIRED
  7. FLONASE NASAL SPRAY [Concomitant]
     Dosage: AS REQUIRED; 2 IN 1 DAY
     Route: 045
  8. EQUATE BRAND ARTHRITIS PAIN [Concomitant]
     Indication: ARTHRALGIA
     Dosage: 650MG AS REQUIRED
  9. SALINE NASAL SPRAY [Concomitant]
     Dosage: NASAL
     Route: 045
  10. CEVIMELINE HCL [Concomitant]
     Indication: SJOGREN^S SYNDROME

REACTIONS (10)
  - Pulmonary hypertension [Unknown]
  - Rheumatoid arthritis [Unknown]
  - Red blood cell sedimentation rate increased [Unknown]
  - Headache [Unknown]
  - Malaise [Unknown]
  - Dyspnoea exertional [Unknown]
  - Sleep apnoea syndrome [Unknown]
  - Pleurisy [Unknown]
  - Musculoskeletal chest pain [Unknown]
  - Drug ineffective [Recovered/Resolved]
